FAERS Safety Report 4573207-0 (Version None)
Quarter: 2005Q1

REPORT INFORMATION
  Report Type: 
  Country: None (occurrence: None)
  Receive Date: 20050208
  Receipt Date: 20040706
  Transmission Date: 20050727
  Serious: Yes (Hospitalization)
  Sender: FDA-Public Use
  Company Number: US-GLAXOSMITHKLINE-A0519822A

PATIENT
  Sex: Male

DRUGS (9)
  1. PAXIL [Suspect]
     Indication: DEPRESSION
     Dosage: 30MG PER DAY
     Route: 048
     Dates: start: 20000201
  2. WELLBUTRIN [Suspect]
  3. FLEXERIL [Suspect]
  4. SKELAXIN [Suspect]
  5. ANTIINFLAMMATORY [Suspect]
  6. ASPIRIN [Suspect]
  7. THEOPHYLLINE [Suspect]
  8. RISPERDAL [Suspect]
  9. COLD MEDICINE [Suspect]

REACTIONS (6)
  - DIZZINESS [None]
  - DRUG WITHDRAWAL SYNDROME [None]
  - FEELING ABNORMAL [None]
  - INTENTIONAL MISUSE [None]
  - SUICIDAL IDEATION [None]
  - SUICIDE ATTEMPT [None]
